FAERS Safety Report 21478782 (Version 2)
Quarter: 2022Q4

REPORT INFORMATION
  Report Type: Report from Study
  Country: SI (occurrence: SI)
  Receive Date: 20221019
  Receipt Date: 20221028
  Transmission Date: 20230113
  Serious: No
  Sender: FDA-Public Use
  Company Number: SI-NOVARTISPH-NVSC2022SI234781

PATIENT
  Sex: Female

DRUGS (2)
  1. PENICILLIN V BENZATHINE [Suspect]
     Active Substance: PENICILLIN V BENZATHINE
     Indication: Tonsillitis
     Dosage: UNK UNK, Q3W
     Route: 065
  2. ASPIRIN [Suspect]
     Active Substance: ASPIRIN
     Indication: Product used for unknown indication
     Dosage: UNK
     Route: 065

REACTIONS (4)
  - Oropharyngeal pain [Unknown]
  - Product use complaint [Unknown]
  - Product size issue [Unknown]
  - Inappropriate schedule of product administration [Unknown]
